FAERS Safety Report 8176674-9 (Version None)
Quarter: 2012Q1

REPORT INFORMATION
  Report Type: 
  Country: None (occurrence: None)
  Receive Date: 20120228
  Receipt Date: 20120211
  Transmission Date: 20120608
  Serious: Yes (Death, Life-Threatening)
  Sender: FDA-Public Use
  Company Number: JPI-P-019830

PATIENT
  Age: 49 Year
  Sex: Male

DRUGS (2)
  1. XYREM [Suspect]
     Indication: APNOEA
     Dosage: 4.5 GM (2.25 GM,2 IN 1 D),ORAL, ORAL,  5 GM (2.5 GM, 2 IN 1 D),ORAL
     Route: 048
     Dates: start: 20120105, end: 20120201
  2. XYREM [Suspect]
     Indication: APNOEA
     Dosage: 4.5 GM (2.25 GM,2 IN 1 D),ORAL, ORAL,  5 GM (2.5 GM, 2 IN 1 D),ORAL
     Route: 048
     Dates: start: 20090519

REACTIONS (2)
  - MYOCARDIAL INFARCTION [None]
  - CARDIAC PROCEDURE COMPLICATION [None]
